FAERS Safety Report 6856310-1 (Version None)
Quarter: 2010Q3

REPORT INFORMATION
  Report Type: 
  Country: None (occurrence: None)
  Receive Date: 20100719
  Receipt Date: 20100708
  Transmission Date: 20110219
  Serious: Yes (Other)
  Sender: FDA-Public Use
  Company Number: GB-JNJFOC-20100509094

PATIENT
  Sex: Male

DRUGS (7)
  1. REMICADE [Suspect]
     Indication: PSORIASIS
     Route: 042
  2. METHOTREXATE [Concomitant]
  3. FOLIC ACID [Concomitant]
  4. TEMAZEPAM [Concomitant]
  5. ACETAMINOPHEN AND CODEINE PHOSPHATE [Concomitant]
  6. ATARAX [Concomitant]
  7. AD CAL [Concomitant]

REACTIONS (8)
  - DEPRESSION [None]
  - FAECAL INCONTINENCE [None]
  - IRRITABILITY [None]
  - NAUSEA [None]
  - PANIC DISORDER [None]
  - PSORIASIS [None]
  - TENSION [None]
  - URINARY INCONTINENCE [None]
